FAERS Safety Report 5129394-9 (Version None)
Quarter: 2006Q4

REPORT INFORMATION
  Report Type: 
  Country: None (occurrence: None)
  Receive Date: 20061012
  Receipt Date: 20060929
  Transmission Date: 20070319
  Serious: Yes (Other)
  Sender: FDA-Public Use
  Company Number: 2006120381

PATIENT
  Age: 40 Year
  Sex: Male

DRUGS (1)
  1. METHYLPREDNISOLONE (MEDHYLPREDNISOLONE) [Suspect]
     Indication: SINUSITIS
     Dosage: 80 MG (40 MG)

REACTIONS (1)
  - HEMIPLEGIA [None]
